FAERS Safety Report 13621972 (Version 1)
Quarter: 2017Q2

REPORT INFORMATION
  Report Type: Spontaneous
  Country: US (occurrence: US)
  Receive Date: 20170607
  Receipt Date: 20170607
  Transmission Date: 20170830
  Serious: Yes (Other)
  Sender: FDA-Public Use
  Company Number: US-ROCHE-1827216

PATIENT
  Sex: Male

DRUGS (1)
  1. XELODA [Suspect]
     Active Substance: CAPECITABINE
     Indication: NEOPLASM MALIGNANT
     Dosage: ON DAYS 1-14 IN A 21 DAY CYCLE
     Route: 048
     Dates: start: 20160528

REACTIONS (3)
  - Constipation [Unknown]
  - Malaise [Unknown]
  - Thrombosis [Unknown]
